FAERS Safety Report 7513894-8 (Version None)
Quarter: 2011Q2

REPORT INFORMATION
  Report Type: 
  Country: None (occurrence: None)
  Receive Date: 20110531
  Receipt Date: 20110517
  Transmission Date: 20111010
  Serious: Yes (Hospitalization, Other)
  Sender: FDA-Public Use
  Company Number: PHHY2011CA11211

PATIENT
  Sex: Female
  Weight: 72 kg

DRUGS (5)
  1. ZOLEDRONIC ACID [Suspect]
     Dosage: 5 MG, UNK
     Route: 042
     Dates: start: 20110228
  2. ZOLEDRONIC ACID [Suspect]
     Indication: OSTEOPOROSIS
     Dosage: 5 MG, UNK
     Route: 042
     Dates: start: 20090310
  3. ZOLEDRONIC ACID [Suspect]
     Dosage: 5 MG, UNK
     Route: 042
     Dates: start: 20100310
  4. CALCIUM CARBONATE [Concomitant]
     Dosage: 1500 MG OD
     Dates: start: 20030101
  5. VITAMIN D [Concomitant]
     Dosage: 1000 UTS, QD
     Dates: start: 20030101

REACTIONS (4)
  - TIBIA FRACTURE [None]
  - FIBULA FRACTURE [None]
  - FALL [None]
  - BONE DENSITY ABNORMAL [None]
